FAERS Safety Report 5267751-0 (Version None)
Quarter: 2007Q1

REPORT INFORMATION
  Report Type: 
  Country: None (occurrence: None)
  Receive Date: 20070316
  Receipt Date: 20070306
  Transmission Date: 20070707
  Serious: Yes (Other)
  Sender: FDA-Public Use
  Company Number: GB-PFIZER INC-2007014436

PATIENT
  Age: 64 Year
  Sex: Male

DRUGS (8)
  1. CABASER [Suspect]
     Indication: PARKINSON'S DISEASE
     Route: 048
  2. ALL OTHER THERAPEUTIC PRODUCTS [Concomitant]
  3. AMITRIPTYLINE HCL [Concomitant]
  4. AMANTADINE HCL [Concomitant]
  5. MADOPAR [Concomitant]
  6. PRAMIPEXOLE DIHYDROCHLORIDE [Concomitant]
  7. DETRUSITOL [Concomitant]
  8. CLONAZEPAM [Concomitant]

REACTIONS (4)
  - AORTIC VALVE INCOMPETENCE [None]
  - CARDIAC VALVE DISEASE [None]
  - MITRAL VALVE INCOMPETENCE [None]
  - TRICUSPID VALVE INCOMPETENCE [None]
